FAERS Safety Report 15272318 (Version 3)
Quarter: 2018Q3

REPORT INFORMATION
  Report Type: Spontaneous
  Country: US (occurrence: US)
  Receive Date: 20180813
  Receipt Date: 20180910
  Transmission Date: 20181010
  Serious: Yes (Hospitalization, Other)
  Sender: FDA-Public Use
  Company Number: US-AMGEN-USASP2018109376

PATIENT
  Age: 64 Year
  Sex: Female

DRUGS (11)
  1. VITAMIN E [Concomitant]
     Active Substance: .ALPHA.-TOCOPHEROL
     Dosage: UNK
  2. PLAQUENIL [Concomitant]
     Active Substance: HYDROXYCHLOROQUINE SULFATE
     Indication: RHEUMATOID ARTHRITIS
     Dosage: UNK
  3. ENBREL [Suspect]
     Active Substance: ETANERCEPT
     Indication: RHEUMATOID ARTHRITIS
     Dosage: UNK
     Route: 058
  4. ENBREL [Suspect]
     Active Substance: ETANERCEPT
     Dosage: UNK UNK, QWK
     Route: 065
  5. CALCIUM WITH VITAMIN D [Concomitant]
     Active Substance: CALCIUM\VITAMIN D
     Dosage: UNK (EVERY OTHER DAY)
  6. NIACIN. [Concomitant]
     Active Substance: NIACIN
     Dosage: UNK
  7. BIOTIN [Concomitant]
     Active Substance: BIOTIN
     Dosage: UNK
  8. BIOFIL [Concomitant]
     Dosage: UNK
  9. ENBREL [Suspect]
     Active Substance: ETANERCEPT
     Dosage: UNK UNK, QWK
     Route: 065
  10. TYLENOL EXTRA STRENGTH [Concomitant]
     Active Substance: ACETAMINOPHEN
     Dosage: UNK (2) TID
  11. PROBIOTIC [Concomitant]
     Active Substance: PROBIOTICS NOS
     Dosage: UNK

REACTIONS (22)
  - Fatigue [Unknown]
  - Carotid artery dissection [Recovered/Resolved]
  - Dyspepsia [Unknown]
  - Osteoarthritis [Unknown]
  - Cow^s milk intolerance [Unknown]
  - Stress [Unknown]
  - Chest discomfort [Unknown]
  - Skin irritation [Unknown]
  - Chills [Unknown]
  - Vomiting [Unknown]
  - Joint swelling [Recovering/Resolving]
  - Feeling cold [Unknown]
  - Constipation [Unknown]
  - Peripheral swelling [Not Recovered/Not Resolved]
  - Injection site pain [Unknown]
  - Rheumatoid arthritis [Unknown]
  - Upper respiratory tract infection [Unknown]
  - Inflammatory bowel disease [Not Recovered/Not Resolved]
  - Blood potassium decreased [Unknown]
  - Memory impairment [Unknown]
  - Injection site discomfort [Unknown]
  - Cough [Unknown]

NARRATIVE: CASE EVENT DATE: 2007
